FAERS Safety Report 22398568 (Version 3)
Quarter: 2024Q2

REPORT INFORMATION
  Report Type: Report from Study
  Country: AE (occurrence: None)
  Receive Date: 20230602
  Receipt Date: 20240506
  Transmission Date: 20240716
  Serious: Yes (Hospitalization)
  Sender: FDA-Public Use
  Company Number: 2023A125087

PATIENT
  Age: 89 Year
  Sex: Female
  Weight: 53 kg

DRUGS (1)
  1. EVUSHELD [Suspect]
     Active Substance: CILGAVIMAB\TIXAGEVIMAB
     Indication: COVID-19 treatment
     Dosage: 600 MG, ONCE/SINGLE ADMINISTRATION, ADMINISTERED AS TWO SEPARATE IM INJECTIONS OF 300 MG AZD8895 ...
     Route: 030
     Dates: start: 20230321

REACTIONS (1)
  - Nephrolithiasis [Recovered/Resolved]

NARRATIVE: CASE EVENT DATE: 20230525
